FAERS Safety Report 8573711 (Version 4)
Quarter: 2012Q4

REPORT INFORMATION
  Report Type: 
  Country: US (occurrence: US)
  Receive Date: 20120522
  Receipt Date: 20120927
  Transmission Date: 20130627
  Serious: Yes (Other)
  Sender: FDA-Public Use
  Company Number: US-ASTRAZENECA-2012SE30154

PATIENT
  Age: 58 Year
  Sex: Female

DRUGS (5)
  1. NEXIUM [Suspect]
     Route: 048
  2. NEXIUM [Suspect]
     Route: 048
  3. NEXIUM [Suspect]
     Route: 048
  4. PRILOSEC OTC [Suspect]
     Route: 048
  5. LORAZEPAM [Concomitant]

REACTIONS (18)
  - Large intestine polyp [Unknown]
  - Oral mucosal blistering [Unknown]
  - Gastrooesophageal reflux disease [Unknown]
  - Abdominal distension [Unknown]
  - Aphagia [Unknown]
  - Irritable bowel syndrome [Unknown]
  - Oesophageal stenosis [Unknown]
  - Oesophageal food impaction [Unknown]
  - Weight decreased [Unknown]
  - Oesophageal disorder [Unknown]
  - Dysphagia [Unknown]
  - Throat irritation [Unknown]
  - Eructation [Unknown]
  - Abdominal discomfort [Unknown]
  - Drug effect incomplete [Unknown]
  - Drug ineffective [Unknown]
  - Off label use [Unknown]
  - Intentional drug misuse [Unknown]
